FAERS Safety Report 6283949-7 (Version None)
Quarter: 2009Q3

REPORT INFORMATION
  Report Type: 
  Country: None (occurrence: None)
  Receive Date: 20090723
  Receipt Date: 20090723
  Transmission Date: 20100115
  Serious: No
  Sender: FDA-Public Use
  Company Number: None

PATIENT
  Sex: Male
  Weight: 68.9467 kg

DRUGS (2)
  1. ZICAM COLD REMEDY NASAL GEL 0.50 FL OZ ZICAM [Suspect]
     Indication: NASOPHARYNGITIS
     Dosage: EVERY 4 HOURS NASAL
     Route: 045
     Dates: start: 20061103, end: 20090616
  2. ZICAM COLD REMEDY NASAL GEL 0.50 FL OZ ZICAM [Suspect]
     Indication: RHINORRHOEA
     Dosage: EVERY 4 HOURS NASAL
     Route: 045
     Dates: start: 20061103, end: 20090616

REACTIONS (2)
  - AGEUSIA [None]
  - ANOSMIA [None]
